FAERS Safety Report 21699156 (Version 2)
Quarter: 2022Q4

REPORT INFORMATION
  Report Type: Spontaneous
  Country: IT (occurrence: IT)
  Receive Date: 20221208
  Receipt Date: 20221215
  Transmission Date: 20230113
  Serious: Yes (Death, Other)
  Sender: FDA-Public Use
  Company Number: IT-BAYER-2022A135025

PATIENT
  Age: 35 Year
  Sex: Male

DRUGS (6)
  1. SORAFENIB [Suspect]
     Active Substance: SORAFENIB
     Indication: Follicular thyroid cancer
     Dosage: 200 MG, QD
     Route: 065
     Dates: start: 20081114
  2. SORAFENIB [Suspect]
     Active Substance: SORAFENIB
     Indication: Poorly differentiated thyroid carcinoma
     Dosage: 400 MG, QD
     Route: 065
     Dates: start: 20081122
  3. SORAFENIB [Suspect]
     Active Substance: SORAFENIB
     Dosage: 200 MILLIGRAM
     Route: 065
     Dates: start: 200811
  4. SORAFENIB [Suspect]
     Active Substance: SORAFENIB
     Dosage: DAILY DOSE 600 MG
     Route: 065
     Dates: start: 20081205
  5. SORAFENIB [Suspect]
     Active Substance: SORAFENIB
     Dosage: 400 MG, QD
     Route: 065
     Dates: start: 20090131
  6. SORAFENIB [Suspect]
     Active Substance: SORAFENIB
     Dosage: 600 MILLIGRAM, QD
     Route: 065
     Dates: start: 20090318, end: 20090606

REACTIONS (14)
  - Thyroid cancer [Fatal]
  - Metastases to liver [Unknown]
  - Metastases to adrenals [Unknown]
  - Lymphadenectomy [Unknown]
  - Pneumonectomy [Unknown]
  - Musculoskeletal pain [Unknown]
  - Tachycardia [Unknown]
  - Weight decreased [Unknown]
  - Palmar-plantar erythrodysaesthesia syndrome [Unknown]
  - Fatigue [Unknown]
  - Pruritus [Unknown]
  - Diarrhoea [Unknown]
  - Drug ineffective [Unknown]
  - Off label use [Unknown]

NARRATIVE: CASE EVENT DATE: 20081114
